FAERS Safety Report 19005842 (Version 1)
Quarter: 2021Q1

REPORT INFORMATION
  Report Type: Spontaneous
  Country: CN (occurrence: CN)
  Receive Date: 20210314
  Receipt Date: 20210314
  Transmission Date: 20210420
  Serious: Yes (Other)
  Sender: FDA-Public Use
  Company Number: CN-FRESENIUS KABI-FK202102442

PATIENT
  Age: 45 Year
  Sex: Male

DRUGS (5)
  1. POLYMYXIN B (MANUFACTURER UNKNOWN) [Suspect]
     Active Substance: POLYMYXIN B
     Route: 042
  2. POLYMYXIN B (MANUFACTURER UNKNOWN) [Suspect]
     Active Substance: POLYMYXIN B
     Route: 042
  3. POLYMYXIN B (MANUFACTURER UNKNOWN) [Suspect]
     Active Substance: POLYMYXIN B
     Indication: PNEUMONIA KLEBSIELLA
     Route: 042
  4. TIGECYCLINE. [Concomitant]
     Active Substance: TIGECYCLINE
     Indication: PNEUMONIA KLEBSIELLA
     Route: 065
  5. POLYMYXIN B (MANUFACTURER UNKNOWN) [Suspect]
     Active Substance: POLYMYXIN B
     Route: 042

REACTIONS (1)
  - Acute kidney injury [Recovering/Resolving]
